FAERS Safety Report 11868765 (Version 2)
Quarter: 2016Q1

REPORT INFORMATION
  Report Type: Spontaneous
  Country: JP (occurrence: JP)
  Receive Date: 20151225
  Receipt Date: 20160107
  Transmission Date: 20160526
  Serious: Yes (Other)
  Sender: FDA-Public Use
  Company Number: JP-ASTRAZENECA-2015SF30715

PATIENT
  Age: 48 Year
  Sex: Male

DRUGS (10)
  1. ONGLYZA [Suspect]
     Active Substance: SAXAGLIPTIN HYDROCHLORIDE
     Indication: DYSLIPIDAEMIA
     Route: 048
  2. ONGLYZA [Suspect]
     Active Substance: SAXAGLIPTIN HYDROCHLORIDE
     Indication: DIABETES MELLITUS
     Route: 048
  3. VOGLIBOSE [Suspect]
     Active Substance: VOGLIBOSE
     Indication: DIABETES MELLITUS
     Route: 048
  4. VOGLIBOSE [Suspect]
     Active Substance: VOGLIBOSE
     Indication: DYSLIPIDAEMIA
     Route: 048
  5. GLIBENCLAMIDE [Suspect]
     Active Substance: GLYBURIDE
     Indication: DIABETES MELLITUS
     Route: 048
  6. ONGLYZA [Suspect]
     Active Substance: SAXAGLIPTIN HYDROCHLORIDE
     Indication: HYPERTENSION
     Route: 048
  7. GLIBENCLAMIDE [Suspect]
     Active Substance: GLYBURIDE
     Indication: HYPERTENSION
     Route: 048
  8. GLIBENCLAMIDE [Suspect]
     Active Substance: GLYBURIDE
     Indication: DYSLIPIDAEMIA
     Route: 048
  9. ANTIDIABETIC AGENTS [Suspect]
     Active Substance: UNSPECIFIED INGREDIENT
     Route: 048
     Dates: start: 201412
  10. VOGLIBOSE [Suspect]
     Active Substance: VOGLIBOSE
     Indication: HYPERTENSION
     Route: 048

REACTIONS (1)
  - Thrombotic cerebral infarction [Unknown]

NARRATIVE: CASE EVENT DATE: 201502
